FAERS Safety Report 15878780 (Version 1)
Quarter: 2019Q1

REPORT INFORMATION
  Report Type: Spontaneous
  Country: US (occurrence: US)
  Receive Date: 20190103
  Receipt Date: 20190103
  Transmission Date: 20190417
  Serious: No
  Sender: FDA-Public Use
  Company Number: None

PATIENT
  Age: 52 Year
  Sex: Male
  Weight: 71.21 kg

DRUGS (1)
  1. TALTZ [Suspect]
     Active Substance: IXEKIZUMAB
     Indication: PSORIATIC ARTHROPATHY
     Dosage: INJECT 160MG (2 SYRINGES) SUBCUTANEOUSLY AT WEEK 0 THEN N80MG (1 SYRINGE)  AT WEEK 2 AS DIRECTED
     Route: 058
     Dates: start: 201812

REACTIONS (1)
  - Blister [None]
